FAERS Safety Report 17426338 (Version 1)
Quarter: 2020Q1

REPORT INFORMATION
  Report Type: Spontaneous
  Country: US (occurrence: US)
  Receive Date: 20200217
  Receipt Date: 20200217
  Transmission Date: 20200409
  Serious: Yes (Hospitalization, Other)
  Sender: FDA-Public Use
  Company Number: US-PFIZER INC-2020066906

PATIENT
  Age: 75 Year
  Sex: Female
  Weight: 68.4 kg

DRUGS (2)
  1. POTASSIUM [Concomitant]
     Active Substance: POTASSIUM
  2. PRISTIQ EXTENDED-RELEASE [Suspect]
     Active Substance: DESVENLAFAXINE SUCCINATE
     Dosage: UNK

REACTIONS (2)
  - Cardiac failure congestive [Unknown]
  - Hypoacusis [Unknown]
